FAERS Safety Report 4312853-6 (Version None)
Quarter: 2004Q1

REPORT INFORMATION
  Report Type: 
  Country: None (occurrence: None)
  Receive Date: 20040304
  Receipt Date: 20040219
  Transmission Date: 20041129
  Serious: Yes (Hospitalization)
  Sender: FDA-Public Use
  Company Number: 04H-122-0250912-00

PATIENT
  Age: 57 Year
  Sex: Male

DRUGS (3)
  1. PENTOTHAL [Suspect]
     Indication: GENERAL ANAESTHESIA
     Dosage: 500 MG, INTRAVENOUS
     Route: 042
     Dates: start: 20040205, end: 20040205
  2. FENTANYL [Suspect]
     Indication: GENERAL ANAESTHESIA
     Dosage: 0.2 MG, INTRAVENOUS
     Route: 042
     Dates: start: 20040205, end: 20030205
  3. VECURONIUM BROMIDE [Suspect]
     Indication: GENERAL ANAESTHESIA
     Dosage: 8 MG, INTRAVENOUS
     Route: 042
     Dates: start: 20040205, end: 20040205

REACTIONS (4)
  - ANAESTHETIC COMPLICATION [None]
  - ANAPHYLACTIC REACTION [None]
  - BRONCHOSPASM [None]
  - PILOERECTION [None]
